FAERS Safety Report 6989636-1 (Version None)
Quarter: 2010Q3

REPORT INFORMATION
  Report Type: 
  Country: None (occurrence: None)
  Receive Date: 20100916
  Receipt Date: 20100205
  Transmission Date: 20110219
  Serious: Yes (Hospitalization)
  Sender: FDA-Public Use
  Company Number: FR-PFIZER INC-2010015403

PATIENT
  Sex: Female

DRUGS (5)
  1. LYRICA [Suspect]
     Indication: NEURALGIA
     Dosage: 75 MG, 2X/DAY
     Route: 048
     Dates: start: 20091015, end: 20091112
  2. IXPRIM [Suspect]
     Dosage: UNK
     Route: 048
     Dates: start: 20091109, end: 20091112
  3. MYOLASTAN [Suspect]
     Dosage: UNK
     Route: 048
     Dates: start: 20091109, end: 20091112
  4. NEXIUM [Suspect]
     Dosage: UNK
     Route: 048
     Dates: start: 20091109, end: 20091112
  5. INDAPAMIDE [Concomitant]
     Indication: HYPERTENSION
     Dosage: 1 DF, 1X/DAY
     Route: 048

REACTIONS (7)
  - EOSINOPHILIA [None]
  - ERYTHEMA [None]
  - GAMMA-GLUTAMYLTRANSFERASE INCREASED [None]
  - OEDEMA [None]
  - PRURITUS [None]
  - PYREXIA [None]
  - RASH PAPULAR [None]
